FAERS Safety Report 6713107-0 (Version None)
Quarter: 2010Q2

REPORT INFORMATION
  Report Type: 
  Country: None (occurrence: None)
  Receive Date: 20100506
  Receipt Date: 20091023
  Transmission Date: 20101027
  Serious: No
  Sender: FDA-Public Use
  Company Number: A0813644A

PATIENT
  Sex: Female

DRUGS (4)
  1. AMOXICILLIN [Suspect]
     Indication: DRUG USE FOR UNKNOWN INDICATION
     Route: 065
  2. ERYTHROMYCIN STEARATE [Suspect]
     Indication: DRUG USE FOR UNKNOWN INDICATION
     Dosage: 250MG UNKNOWN
     Route: 065
  3. BACTRIM [Suspect]
     Indication: DRUG USE FOR UNKNOWN INDICATION
     Route: 065
  4. LEVAQUIN [Suspect]
     Indication: DRUG USE FOR UNKNOWN INDICATION
     Route: 065

REACTIONS (1)
  - ADVERSE DRUG REACTION [None]
